FAERS Safety Report 21683056 (Version 2)
Quarter: 2022Q4

REPORT INFORMATION
  Report Type: Report from Study
  Country: MX (occurrence: MX)
  Receive Date: 20221205
  Receipt Date: 20221207
  Transmission Date: 20230113
  Serious: Yes (Death, Hospitalization, Other)
  Sender: FDA-Public Use
  Company Number: MX-BRISTOL-MYERS SQUIBB COMPANY-2022-145328

PATIENT
  Age: 35 Year
  Sex: Male
  Weight: 59 kg

DRUGS (1)
  1. OPDIVO [Suspect]
     Active Substance: NIVOLUMAB
     Indication: Head and neck cancer
     Dosage: EVERY 15 DAYS
     Route: 042
     Dates: start: 20221004, end: 20221115

REACTIONS (7)
  - Vasculitis [Recovering/Resolving]
  - Arterial rupture [Recovering/Resolving]
  - Intentional product use issue [Unknown]
  - Internal haemorrhage [Recovering/Resolving]
  - Cardiac arrest [Recovering/Resolving]
  - Hypervolaemia [Recovering/Resolving]
  - Brain death [Fatal]

NARRATIVE: CASE EVENT DATE: 20221123
